FAERS Safety Report 7038048-3 (Version None)
Quarter: 2010Q4

REPORT INFORMATION
  Report Type: 
  Country: None (occurrence: None)
  Receive Date: 20101011
  Receipt Date: 20101007
  Transmission Date: 20110411
  Serious: Yes (Hospitalization)
  Sender: FDA-Public Use
  Company Number: US-PFIZER INC-2010118985

PATIENT
  Sex: Female
  Weight: 84.807 kg

DRUGS (9)
  1. VARENICLINE TARTRATE [Suspect]
     Indication: SMOKING CESSATION THERAPY
     Dosage: 1.0 MG, 2X/DAY
     Dates: start: 20100622, end: 20100624
  2. VARENICLINE TARTRATE [Suspect]
     Dosage: 0.5 MG, 2X/DAY
     Route: 048
     Dates: start: 20100625, end: 20100628
  3. VARENICLINE TARTRATE [Suspect]
     Dosage: 1 MG, 2X/DAY
     Route: 048
     Dates: start: 20100629, end: 20100822
  4. VARENICLINE TARTRATE [Suspect]
     Dosage: 1MG IN AM, 0.5MG AT NIGHT
     Route: 048
     Dates: start: 20100823, end: 20100823
  5. VARENICLINE TARTRATE [Suspect]
     Dosage: 0.5MG IN AM, 1MG AT NIGHT
     Route: 048
     Dates: start: 20100824, end: 20100824
  6. VARENICLINE TARTRATE [Suspect]
     Dosage: 1 MG, 2X/DAY
     Route: 048
     Dates: start: 20100825, end: 20100912
  7. VARENICLINE TARTRATE [Suspect]
     Dosage: 1 MG IN AM
     Route: 048
     Dates: start: 20100913
  8. RISPERIDONE [Concomitant]
     Dosage: 4 MG, UNK
     Dates: start: 20070101
  9. LISINOPRIL [Concomitant]
     Dosage: 40 MG, UNK
     Dates: start: 20080101

REACTIONS (3)
  - GASTRIC ULCER [None]
  - GASTRITIS [None]
  - HIATUS HERNIA [None]
